FAERS Safety Report 22867607 (Version 2)
Quarter: 2023Q4

REPORT INFORMATION
  Report Type: Spontaneous
  Country: US (occurrence: US)
  Receive Date: 20230825
  Receipt Date: 20231013
  Transmission Date: 20240110
  Serious: Yes (Death, Hospitalization)
  Sender: FDA-Public Use
  Company Number: US-PFIZER INC-PV202300145413

PATIENT
  Age: 66 Year
  Sex: Female

DRUGS (6)
  1. IBRANCE [Suspect]
     Active Substance: PALBOCICLIB
     Indication: Breast cancer
     Dosage: TAKE 1 TABLET BY MOUTH EVERY DAY FOR 3 WEEKS, THE OFF FOR ONE WEEK
     Route: 048
     Dates: start: 20220825, end: 20230801
  2. CARVEDILOL [Concomitant]
     Active Substance: CARVEDILOL
     Dosage: 3.125
  3. CLONIDINE [Concomitant]
     Active Substance: CLONIDINE
     Dosage: 0.1
  4. ELIQUIS [Concomitant]
     Active Substance: APIXABAN
     Dosage: 2.5
  5. FERROUS SULFATE [Concomitant]
     Active Substance: FERROUS SULFATE
     Dosage: 325
  6. PANTOPRAZOLE [Concomitant]
     Active Substance: PANTOPRAZOLE
     Dosage: 40 MG

REACTIONS (2)
  - Multiple organ dysfunction syndrome [Fatal]
  - Dehydration [Unknown]
